FAERS Safety Report 5449999-5 (Version None)
Quarter: 2007Q3

REPORT INFORMATION
  Report Type: 
  Country: None (occurrence: None)
  Receive Date: 20070912
  Receipt Date: 20070904
  Transmission Date: 20080115
  Serious: Yes (Death)
  Sender: FDA-Public Use
  Company Number: TW-AVENTIS-200717646GDDC

PATIENT
  Age: 70 Year
  Sex: Female
  Weight: 46 kg

DRUGS (12)
  1. STUDY MEDICATION NOT YET GIVEN [Suspect]
  2. GLIMEPIRIDE [Suspect]
     Dates: start: 20060802
  3. METFORMIN HCL [Suspect]
     Dates: start: 20060913
  4. SENNOSIDE B [Concomitant]
     Indication: CONSTIPATION
     Route: 048
     Dates: start: 20060816
  5. LORAZEPAM [Concomitant]
     Indication: INSOMNIA
     Dates: start: 20060806
  6. AMITRIPTYLINE HCL [Concomitant]
     Dates: start: 20061227
  7. ASPIRIN [Concomitant]
     Dates: start: 20061129
  8. GEMFIBROZIL [Concomitant]
     Dates: start: 20061227
  9. VALSARTAN [Concomitant]
     Dates: start: 20050323
  10. CILOSTAZOL [Concomitant]
     Dates: start: 20070605
  11. SILVER SULFADIAZINE [Concomitant]
     Indication: SKIN DISORDER
     Dates: start: 20070801
  12. CARBAMAZEPINE [Concomitant]
     Indication: NEUROPATHY
     Dates: start: 20070605, end: 20070615

REACTIONS (1)
  - SUDDEN DEATH [None]
